FAERS Safety Report 8833710 (Version 2)
Quarter: 2012Q4

REPORT INFORMATION
  Report Type: 
  Country: US (occurrence: US)
  Receive Date: 20121010
  Receipt Date: 20121015
  Transmission Date: 20130627
  Serious: No
  Sender: FDA-Public Use
  Company Number: US-TEVA-363649USA

PATIENT
  Age: 22 Year
  Sex: Female
  Weight: 79.45 kg

DRUGS (3)
  1. PLAN B ONE-STEP [Suspect]
     Indication: POST COITAL CONTRACEPTION
     Dosage: 1.5 Milligram Daily;
     Route: 048
     Dates: start: 20120919, end: 20120919
  2. DEXEDRINE [Concomitant]
     Indication: ATTENTION DEFICIT/HYPERACTIVITY DISORDER
  3. ALTAVERA [Concomitant]
     Indication: CONTRACEPTION

REACTIONS (1)
  - Menstruation irregular [Recovered/Resolved]
